FAERS Safety Report 5295155-3 (Version None)
Quarter: 2007Q2

REPORT INFORMATION
  Report Type: 
  Country: None (occurrence: None)
  Receive Date: 20070412
  Receipt Date: 20070405
  Transmission Date: 20071010
  Serious: Yes (Hospitalization)
  Sender: FDA-Public Use
  Company Number: PL-BOEHRINGER INGELHEIM PHARMACEUTICALS, INC.-2007-DE-02049GD

PATIENT

DRUGS (1)
  1. DIPYRIDAMOLE AMPOULE [Suspect]
     Indication: STRESS ECHOCARDIOGRAM
     Route: 042

REACTIONS (1)
  - MYOCARDIAL ISCHAEMIA [None]
